FAERS Safety Report 9854335 (Version 1)
Quarter: 2014Q1

REPORT INFORMATION
  Report Type: Spontaneous
  Country: US (occurrence: US)
  Receive Date: 20140130
  Receipt Date: 20140130
  Transmission Date: 20141002
  Serious: Yes (Hospitalization)
  Sender: FDA-Public Use
  Company Number: US-BIOGENIDEC-2014BI008132

PATIENT
  Sex: Female
  Weight: 53 kg

DRUGS (13)
  1. TECFIDERA [Suspect]
     Indication: PRODUCT USED FOR UNKNOWN INDICATION
  2. CLARINEX [Concomitant]
  3. TOPROL XL [Concomitant]
  4. AVONEX [Concomitant]
  5. MODAFINIL [Concomitant]
  6. POTASSIUM [Concomitant]
  7. MAGNESIUM [Concomitant]
  8. VITAMIN B COMPLEX [Concomitant]
  9. CRANBERRY [Concomitant]
  10. VITAMIN D3 [Concomitant]
  11. COQ-10 [Concomitant]
  12. GINKOGIN [Concomitant]
  13. FISH OIL [Concomitant]

REACTIONS (3)
  - Gastric disorder [Unknown]
  - Vomiting [Unknown]
  - Dehydration [Unknown]
